FAERS Safety Report 6198846-5 (Version None)
Quarter: 2009Q2

REPORT INFORMATION
  Report Type: 
  Country: None (occurrence: None)
  Receive Date: 20090520
  Receipt Date: 20090520
  Transmission Date: 20091009
  Serious: No
  Sender: FDA-Public Use
  Company Number: None

PATIENT
  Age: 58 Year
  Sex: Male
  Weight: 72.5755 kg

DRUGS (1)
  1. MINOCYCLINE HCL [Suspect]
     Indication: INFLAMMATION
     Dosage: ONE 100MG CAPSULE TWICE DAILY ORAL
     Route: 048
     Dates: start: 20090420, end: 20090506

REACTIONS (1)
  - CONSTIPATION [None]
